FAERS Safety Report 5592886-2 (Version None)
Quarter: 2008Q1

REPORT INFORMATION
  Report Type: 
  Country: None (occurrence: None)
  Receive Date: 20080114
  Receipt Date: 20080114
  Transmission Date: 20080703
  Serious: Yes (Other)
  Sender: FDA-Public Use
  Company Number: None

PATIENT
  Age: 38 Year
  Sex: Female
  Weight: 66.6788 kg

DRUGS (2)
  1. TUMA ULTRA 1000-PEPPERMINT FLAV MAXIUMUM STRENGTH [Suspect]
     Indication: DYSPEPSIA
     Dosage: 2 TABLETS  ONCE  PO
     Route: 048
     Dates: start: 20080111
  2. TUMS ULTRA 1000-  PEPPERMINT FLAV   MAXIMUM STRENGTH [Suspect]

REACTIONS (4)
  - DRUG EFFECT DECREASED [None]
  - OEDEMA PERIPHERAL [None]
  - PRURITUS [None]
  - RASH GENERALISED [None]
